FAERS Safety Report 5026817-0 (Version None)
Quarter: 2006Q2

REPORT INFORMATION
  Report Type: 
  Country: None (occurrence: None)
  Receive Date: 20060609
  Receipt Date: 20060530
  Transmission Date: 20061013
  Serious: Yes (Hospitalization)
  Sender: FDA-Public Use
  Company Number: DE-2006-012013

PATIENT
  Age: 49 Year
  Sex: Female
  Weight: 70 kg

DRUGS (2)
  1. MIRENA [Suspect]
     Indication: CONTRACEPTION
     Dosage: 20 UG/DAY, CONT, INTRA-UTERINE
     Route: 015
  2. ENALAPRIL MALEATE [Concomitant]

REACTIONS (3)
  - COLITIS ISCHAEMIC [None]
  - MESENTERIC OCCLUSION [None]
  - MESENTERIC VEIN THROMBOSIS [None]
